FAERS Safety Report 6218378-5 (Version None)
Quarter: 2009Q2

REPORT INFORMATION
  Report Type: 
  Country: None (occurrence: None)
  Receive Date: 20090608
  Receipt Date: 20090529
  Transmission Date: 20091009
  Serious: Yes (Congenital Anomaly)
  Sender: FDA-Public Use
  Company Number: A0788916A

PATIENT

DRUGS (2)
  1. TRIZIVIR [Suspect]
     Indication: HIV INFECTION
     Dosage: 2TAB PER DAY
     Dates: start: 20090109, end: 20090408
  2. ZIDOVUDINE [Concomitant]
     Indication: ANTIVIRAL PROPHYLAXIS
     Dates: start: 20090408, end: 20090408

REACTIONS (4)
  - ATRIAL SEPTAL DEFECT [None]
  - DILATATION VENTRICULAR [None]
  - DRUG EXPOSURE DURING PREGNANCY [None]
  - PATENT DUCTUS ARTERIOSUS [None]
